FAERS Safety Report 7007219-4 (Version None)
Quarter: 2010Q3

REPORT INFORMATION
  Report Type: 
  Country: None (occurrence: None)
  Receive Date: 20100922
  Receipt Date: 20100915
  Transmission Date: 20110219
  Serious: Yes (Death, Life-Threatening)
  Sender: FDA-Public Use
  Company Number: CZ-BAYER-201035289GPV

PATIENT
  Age: 58 Year
  Sex: Male

DRUGS (6)
  1. NEXAVAR [Suspect]
     Indication: RENAL CANCER
     Dosage: UNIT DOSE: 200 MG
     Route: 048
     Dates: start: 20100206, end: 20100219
  2. LOZAP [Concomitant]
  3. VIGANTOL [Concomitant]
  4. CALCIUM [Concomitant]
  5. MORPHINE [Concomitant]
     Route: 048
  6. ZOMETA [Concomitant]

REACTIONS (5)
  - ANAEMIA [None]
  - BLOOD CREATININE INCREASED [None]
  - BLOOD UREA INCREASED [None]
  - RENAL CELL CARCINOMA [None]
  - THROMBOCYTOSIS [None]
